FAERS Safety Report 9550686 (Version 1)
Quarter: 2013Q3

REPORT INFORMATION
  Report Type: Spontaneous
  Country: US (occurrence: US)
  Receive Date: 20130924
  Receipt Date: 20130924
  Transmission Date: 20140515
  Serious: No
  Sender: FDA-Public Use
  Company Number: US-SANOFI-AVENTIS-2013SA016937

PATIENT
  Sex: Male

DRUGS (1)
  1. AUBAGIO [Suspect]
     Indication: MULTIPLE SCLEROSIS
     Route: 065

REACTIONS (5)
  - Muscular weakness [Unknown]
  - Alopecia [Unknown]
  - Burning sensation [Unknown]
  - Paraesthesia [Unknown]
  - Hypoaesthesia [Unknown]
